FAERS Safety Report 8032460-1 (Version None)
Quarter: 2012Q1

REPORT INFORMATION
  Report Type: 
  Country: None (occurrence: None)
  Receive Date: 20120110
  Receipt Date: 20120104
  Transmission Date: 20120608
  Serious: Yes (Hospitalization, Other)
  Sender: FDA-Public Use
  Company Number: IT-JNJFOC-20111100661

PATIENT
  Sex: Female

DRUGS (17)
  1. PHENYTOIN SODIUM [Suspect]
     Route: 048
     Dates: start: 20110929, end: 20111001
  2. OXCARBAZEPINE [Suspect]
     Route: 048
     Dates: start: 20111020, end: 20111024
  3. OXCARBAZEPINE [Suspect]
     Route: 048
     Dates: start: 20111005, end: 20111006
  4. OXCARBAZEPINE [Suspect]
     Route: 048
     Dates: start: 20110929, end: 20111001
  5. VALIUM [Concomitant]
     Route: 048
     Dates: start: 20111020, end: 20111023
  6. HALOPERIDOL [Suspect]
     Indication: PSYCHOTIC DISORDER
     Route: 048
     Dates: start: 20110929, end: 20111001
  7. HALOPERIDOL [Suspect]
     Route: 048
     Dates: start: 20111007, end: 20111010
  8. PHENYTOIN SODIUM [Suspect]
     Route: 048
     Dates: start: 20111005, end: 20111019
  9. VALIUM [Concomitant]
     Route: 048
     Dates: start: 20111024, end: 20111026
  10. PHENYTOIN SODIUM [Suspect]
     Indication: EPILEPSY
     Route: 048
     Dates: start: 20111020, end: 20111024
  11. OXCARBAZEPINE [Suspect]
     Route: 048
     Dates: start: 20111007, end: 20111010
  12. OXCARBAZEPINE [Suspect]
     Indication: EPILEPSY
     Route: 048
     Dates: start: 20111018, end: 20111020
  13. VALIUM [Concomitant]
     Route: 048
     Dates: start: 20111007, end: 20111011
  14. OXCARBAZEPINE [Suspect]
     Route: 048
     Dates: start: 20111011, end: 20111017
  15. VALIUM [Concomitant]
     Indication: PRODUCT USED FOR UNKNOWN INDICATION
     Route: 048
     Dates: start: 20111013, end: 20111015
  16. HALOPERIDOL [Suspect]
     Route: 048
     Dates: start: 20111015, end: 20111018
  17. HALOPERIDOL [Suspect]
     Route: 048
     Dates: start: 20111020, end: 20111024

REACTIONS (2)
  - STEVENS-JOHNSON SYNDROME [None]
  - STAPHYLOCOCCAL SEPSIS [None]
